FAERS Safety Report 7580426-8 (Version None)
Quarter: 2011Q2

REPORT INFORMATION
  Report Type: 
  Country: None (occurrence: None)
  Receive Date: 20110629
  Receipt Date: 20110624
  Transmission Date: 20111010
  Serious: No
  Sender: FDA-Public Use
  Company Number: US-TEVA-288017USA

PATIENT
  Sex: Female

DRUGS (2)
  1. LEVORA 0.15/30-21 [Concomitant]
     Indication: CONTRACEPTION
     Route: 048
     Dates: start: 20110620
  2. PLAN B ONE-STEP [Suspect]
     Indication: POST COITAL CONTRACEPTION
     Dosage: 1.5 MILLIGRAM;
     Route: 048
     Dates: start: 20110620, end: 20110620

REACTIONS (3)
  - DIZZINESS [None]
  - NAUSEA [None]
  - IRRITABILITY [None]
